FAERS Safety Report 8373951-3 (Version None)
Quarter: 2012Q2

REPORT INFORMATION
  Report Type: 
  Country: None (occurrence: None)
  Receive Date: 20120521
  Receipt Date: 20120516
  Transmission Date: 20120825
  Serious: Yes (Hospitalization, Other)
  Sender: FDA-Public Use
  Company Number: JP-B.I. PHARMACEUTICALS,INC./RIDGEFIELD-2012-BP-09388NB

PATIENT
  Sex: Male
  Weight: 38 kg

DRUGS (3)
  1. SPIRIVA [Suspect]
     Indication: CHRONIC OBSTRUCTIVE PULMONARY DISEASE
     Dosage: 18 MCG
     Route: 055
     Dates: start: 20090509, end: 20120329
  2. MUCOSOLVAN [Concomitant]
     Route: 048
     Dates: start: 20090509
  3. ADVAIR DISKUS 100/50 [Concomitant]
     Route: 055

REACTIONS (4)
  - PROSTATE CANCER [None]
  - URINARY RETENTION [None]
  - BRONCHITIS [None]
  - CHRONIC OBSTRUCTIVE PULMONARY DISEASE [None]
